FAERS Safety Report 4358246-7 (Version None)
Quarter: 2004Q2

REPORT INFORMATION
  Report Type: 
  Country: None (occurrence: None)
  Receive Date: 20040514
  Receipt Date: 20040326
  Transmission Date: 20050107
  Serious: Yes (Other)
  Sender: FDA-Public Use
  Company Number: CA-AMGEN-US070598

PATIENT
  Sex: Female

DRUGS (8)
  1. ARANESP [Suspect]
     Indication: RENAL FAILURE CHRONIC
     Route: 042
     Dates: start: 20031124, end: 20040402
  2. EPREX [Suspect]
     Route: 058
     Dates: start: 20010501, end: 20031124
  3. FLUOXETINE [Concomitant]
     Dates: start: 20020422
  4. FOSINOPRIL SODIUM [Concomitant]
     Dates: start: 20021201
  5. SINEMET [Concomitant]
     Dates: start: 20021201
  6. MAXERAN [Concomitant]
     Dates: start: 20021201
  7. RANITIDINE [Concomitant]
     Dates: start: 20021201
  8. IRON DEXTRAN [Concomitant]
     Dates: start: 20010101, end: 20030701

REACTIONS (6)
  - BLOOD ALBUMIN DECREASED [None]
  - BLOOD IRON DECREASED [None]
  - BLOOD PARATHYROID HORMONE INCREASED [None]
  - HAEMOGLOBIN DECREASED [None]
  - TRANSFERRIN SATURATION DECREASED [None]
  - VITAMIN B12 DECREASED [None]
